FAERS Safety Report 20877559 (Version 2)
Quarter: 2022Q2

REPORT INFORMATION
  Report Type: Spontaneous
  Country: US (occurrence: US)
  Receive Date: 20220526
  Receipt Date: 20220610
  Transmission Date: 20220721
  Serious: No
  Sender: FDA-Public Use
  Company Number: US-PFIZER INC-202200726112

PATIENT
  Age: 73 Year
  Sex: Male
  Weight: 95.25 kg

DRUGS (1)
  1. PAXLOVID [Suspect]
     Active Substance: NIRMATRELVIR\RITONAVIR
     Indication: COVID-19 treatment
     Dosage: UNK (RENAL DOSE/ FIRST DOSE WAS THIS MORNING TWO RITONAVIR TABLETS AND NO NIRMATRELVIR TABLETS)
     Dates: start: 20220517, end: 20220521

REACTIONS (1)
  - Product dose omission in error [Recovered/Resolved]

NARRATIVE: CASE EVENT DATE: 20220517
